FAERS Safety Report 7945110-7 (Version None)
Quarter: 2011Q4

REPORT INFORMATION
  Report Type: 
  Country: None (occurrence: None)
  Receive Date: 20111129
  Receipt Date: 20111129
  Transmission Date: 20120403
  Serious: Yes (Other)
  Sender: FDA-Public Use
  Company Number: None

PATIENT
  Age: 59 Year
  Sex: Female
  Weight: 111.13 kg

DRUGS (2)
  1. CELEBREX [Suspect]
     Indication: ARTHRALGIA
     Dosage: 1 CAPSULE
     Route: 048
     Dates: start: 20111111, end: 20111125
  2. CELEBREX [Suspect]
     Indication: ARTHRITIS
     Dosage: 1 CAPSULE
     Route: 048
     Dates: start: 20111111, end: 20111125

REACTIONS (5)
  - ERYTHEMA [None]
  - BURNING SENSATION [None]
  - SWELLING FACE [None]
  - URTICARIA [None]
  - IRRITABILITY [None]
